FAERS Safety Report 9692629 (Version 1)
Quarter: 2013Q4

REPORT INFORMATION
  Report Type: Spontaneous
  Country: US (occurrence: None)
  Receive Date: 20131115
  Receipt Date: 20131115
  Transmission Date: 20140711
  Serious: Yes (Other)
  Sender: FDA-Public Use
  Company Number: None

PATIENT
  Age: 11 Year
  Sex: Male
  Weight: 37.2 kg

DRUGS (10)
  1. CHLORPROMAZINE [Suspect]
     Indication: AGGRESSION
     Route: 030
     Dates: start: 20131112
  2. CHLORPROMAZINE [Suspect]
     Indication: AGITATION
     Route: 030
     Dates: start: 20131112
  3. HALDOL 5MG/ML [Concomitant]
  4. ATIVAN 2MG [Concomitant]
  5. TRAODONE 50MG [Concomitant]
  6. FLUOXETINE 20MG [Concomitant]
  7. GUANFACINE 1MG [Concomitant]
  8. CONCERTA 36MG [Concomitant]
  9. METHYLPHENIDATE 20MG MALLINCKRODT [Concomitant]
  10. RISPERDAL 0.5MG [Concomitant]

REACTIONS (3)
  - Swollen tongue [None]
  - Dysphagia [None]
  - Speech disorder [None]
